FAERS Safety Report 6906494-1 (Version None)
Quarter: 2010Q3

REPORT INFORMATION
  Report Type: 
  Country: None (occurrence: None)
  Receive Date: 20100804
  Receipt Date: 20100726
  Transmission Date: 20110219
  Serious: Yes (Other)
  Sender: FDA-Public Use
  Company Number: CN-PFIZER INC-2010093946

PATIENT

DRUGS (2)
  1. CADUET [Suspect]
     Indication: HYPERTENSION
     Dosage: 5MG/10MG
     Route: 048
     Dates: start: 20100701
  2. CADUET [Suspect]
     Indication: HYPERLIPIDAEMIA

REACTIONS (1)
  - BLOOD PRESSURE INADEQUATELY CONTROLLED [None]
